FAERS Safety Report 10171651 (Version 1)
Quarter: 2014Q2

REPORT INFORMATION
  Report Type: Spontaneous
  Country: CZ (occurrence: CZ)
  Receive Date: 20140514
  Receipt Date: 20140514
  Transmission Date: 20141212
  Serious: Yes (Other)
  Sender: FDA-Public Use
  Company Number: CZ-PFIZER INC-2014130286

PATIENT
  Age: 52 Year
  Sex: Male

DRUGS (8)
  1. METHYLPREDNISOLONE SODIUM SUCCINATE [Suspect]
     Indication: VITRITIS
     Dosage: PULSES, 7 DAYS
     Route: 042
  2. METHYLPREDNISOLONE [Suspect]
     Indication: VITRITIS
     Dosage: 28MG/DAY FOR 7 DAYS
     Route: 048
  3. METHYLPREDNISOLONE [Suspect]
     Dosage: 24 MG, DAILY FOR 7 DAYS
     Route: 048
  4. METHYLPREDNISOLONE [Suspect]
     Dosage: 20 MG, DAILY FOR 7 DAYS
     Route: 048
  5. METHYLPREDNISOLONE [Suspect]
     Dosage: 16 MG, DAILY FOR 7 DAYS
     Route: 048
  6. METHYLPREDNISOLONE [Suspect]
     Dosage: 12 MG, DAILY FOR 7 DAYS
     Route: 048
  7. METHYLPREDNISOLONE [Suspect]
     Dosage: 8 MG, DAILY FOR 7 DAYS
     Route: 048
  8. METHYLPREDNISOLONE [Suspect]
     Dosage: 4MG/DAY, LONG-TERM MAINTENANCE DOSE
     Route: 048

REACTIONS (3)
  - Venous thrombosis [Unknown]
  - Acne [Unknown]
  - Abdominal discomfort [Unknown]
